FAERS Safety Report 14485442 (Version 1)
Quarter: 2018Q1

REPORT INFORMATION
  Report Type: Spontaneous
  Country: US (occurrence: US)
  Receive Date: 20180205
  Receipt Date: 20180205
  Transmission Date: 20180509
  Serious: No
  Sender: FDA-Public Use
  Company Number: US-PFM-2017-12710

PATIENT

DRUGS (2)
  1. NAVELBINE [Suspect]
     Active Substance: VINORELBINE TARTRATE
     Indication: ADENOCARCINOMA OF SALIVARY GLAND
     Dosage: UNK
     Route: 065
  2. NAVELBINE [Suspect]
     Active Substance: VINORELBINE TARTRATE
     Indication: OFF LABEL USE

REACTIONS (2)
  - Off label use [Unknown]
  - Product use in unapproved indication [Unknown]
